FAERS Safety Report 4512980-4 (Version None)
Quarter: 2004Q4

REPORT INFORMATION
  Report Type: 
  Country: None (occurrence: None)
  Receive Date: 20041124
  Receipt Date: 20041117
  Transmission Date: 20050328
  Serious: Yes (Death)
  Sender: FDA-Public Use
  Company Number: 163-20785-04100391

PATIENT
  Age: 59 Year
  Sex: Male

DRUGS (2)
  1. THALOMID [Suspect]
     Indication: CARCINOID TUMOUR
     Dosage: 400 MG, DAILY, ORAL
     Route: 048
     Dates: start: 20040107, end: 20040720
  2. THALOMID [Suspect]
     Indication: METASTATIC NEOPLASM
     Dosage: 400 MG, DAILY, ORAL
     Route: 048
     Dates: start: 20040107, end: 20040720

REACTIONS (3)
  - DISEASE PROGRESSION [None]
  - HEPATIC FAILURE [None]
  - PERIPHERAL SENSORY NEUROPATHY [None]
